FAERS Safety Report 5387288-8 (Version None)
Quarter: 2007Q3

REPORT INFORMATION
  Report Type: 
  Country: None (occurrence: None)
  Receive Date: 20070716
  Receipt Date: 20070709
  Transmission Date: 20080115
  Serious: Yes (Other)
  Sender: FDA-Public Use
  Company Number: NSADSS2002008143

PATIENT
  Age: 19 Year
  Sex: Male

DRUGS (5)
  1. REMICADE [Suspect]
     Route: 041
  2. REMICADE [Suspect]
     Route: 041
  3. REMICADE [Suspect]
     Route: 041
  4. REMICADE [Suspect]
     Route: 041
  5. REMICADE [Suspect]
     Indication: SPONDYLOARTHROPATHY
     Route: 041

REACTIONS (5)
  - ABDOMINAL PAIN [None]
  - AGRANULOCYTOSIS [None]
  - AUTOANTIBODY POSITIVE [None]
  - LYMPHOCYTOSIS [None]
  - NEUTROPHIL COUNT DECREASED [None]
